FAERS Safety Report 7783231-2 (Version None)
Quarter: 2011Q3

REPORT INFORMATION
  Report Type: 
  Country: None (occurrence: None)
  Receive Date: 20110928
  Receipt Date: 20110919
  Transmission Date: 20111222
  Serious: Yes (Other)
  Sender: FDA-Public Use
  Company Number: US-JNJFOC-20110904660

PATIENT
  Sex: Female

DRUGS (3)
  1. TOPIRAMATE [Suspect]
     Route: 065
     Dates: start: 20080401, end: 20080721
  2. TOPIRAMATE [Suspect]
     Indication: EPILEPSY
     Dosage: 92 (UNITS UNSPECIFIED)
     Route: 048
     Dates: start: 20080401, end: 20080721
  3. PHENTERMINE [Suspect]
     Indication: PRODUCT USED FOR UNKNOWN INDICATION
     Dosage: 15 (UNITS UNSPECIFIED)
     Route: 065
     Dates: start: 20080401, end: 20080721

REACTIONS (2)
  - MATERNAL EXPOSURE DURING PREGNANCY [None]
  - ABORTION SPONTANEOUS [None]
